FAERS Safety Report 8371439-7 (Version None)
Quarter: 2012Q2

REPORT INFORMATION
  Report Type: 
  Country: None (occurrence: None)
  Receive Date: 20120518
  Receipt Date: 20111205
  Transmission Date: 20120825
  Serious: No
  Sender: FDA-Public Use
  Company Number: US-BRISTOL-MYERS SQUIBB COMPANY-16270761

PATIENT
  Sex: Female

DRUGS (1)
  1. GLIPIZIDE AND METFORMIN HCL [Suspect]
     Dosage: GLIPIZIDE 5MG

REACTIONS (2)
  - BLOOD GLUCOSE INCREASED [None]
  - NAUSEA [None]
